FAERS Safety Report 8588915-4 (Version None)
Quarter: 2012Q3

REPORT INFORMATION
  Report Type: 
  Country: None (occurrence: None)
  Receive Date: 20120813
  Receipt Date: 20120806
  Transmission Date: 20120928
  Serious: Yes (Other)
  Sender: FDA-Public Use
  Company Number: JP-VERTEX PHARMACEUTICALS INC.-AE-2012-011845

PATIENT
  Age: 67 Year
  Sex: Female

DRUGS (10)
  1. MUCODYNE [Concomitant]
     Route: 048
  2. REBETOL [Concomitant]
     Indication: HEPATITIS C
     Route: 048
     Dates: start: 20120614, end: 20120627
  3. TELAVIC (TELAPREVIR) [Suspect]
     Indication: HEPATITIS C
     Route: 048
     Dates: start: 20120614, end: 20120627
  4. THEO-DUR [Concomitant]
     Route: 048
  5. PEGINTERFERON ALFA-2B [Concomitant]
     Route: 058
     Dates: start: 20120712
  6. PEGINTERFERON ALFA-2B [Concomitant]
     Indication: HEPATITIS C
     Route: 058
     Dates: start: 20120614, end: 20120621
  7. PEGINTERFERON ALFA-2B [Concomitant]
     Route: 058
     Dates: start: 20120719
  8. REBETOL [Concomitant]
     Route: 048
     Dates: start: 20120705
  9. PEGINTERFERON ALFA-2B [Concomitant]
     Route: 058
     Dates: start: 20120705
  10. LENDORMIN [Concomitant]
     Route: 048

REACTIONS (3)
  - BLOOD URIC ACID INCREASED [None]
  - ANAEMIA [None]
  - DECREASED APPETITE [None]
